FAERS Safety Report 9288257 (Version 1)
Quarter: 2013Q2

REPORT INFORMATION
  Report Type: Report from Study
  Country: BR (occurrence: BR)
  Receive Date: 20130514
  Receipt Date: 20130514
  Transmission Date: 20140414
  Serious: Yes (Other)
  Sender: FDA-Public Use
  Company Number: PHHY2012BR059700

PATIENT
  Sex: Female

DRUGS (2)
  1. FORASEQ [Suspect]
     Indication: ASTHMA
     Dosage: TWO INHALATIONS A DAY
     Dates: end: 201207
  2. MIFLONIDE [Suspect]
     Indication: ASTHMA
     Dosage: TWO INHALATIONS A DAY
     Dates: start: 201207

REACTIONS (3)
  - Hypothyroidism [Recovered/Resolved]
  - Asthma [Not Recovered/Not Resolved]
  - Exposure during pregnancy [Unknown]
